FAERS Safety Report 15411157 (Version 5)
Quarter: 2019Q3

REPORT INFORMATION
  Report Type: Spontaneous
  Country: US (occurrence: US)
  Receive Date: 20180921
  Receipt Date: 20190830
  Transmission Date: 20191004
  Serious: Yes (Other)
  Sender: FDA-Public Use
  Company Number: US-PFIZER INC-2018381419

PATIENT
  Age: 81 Year
  Sex: Female
  Weight: 63.5 kg

DRUGS (3)
  1. PREMARIN [Suspect]
     Active Substance: ESTROGENS, CONJUGATED
     Indication: HORMONE REPLACEMENT THERAPY
     Dosage: 1 MG, WEEKLY (ONCE A WEEK)
     Route: 067
     Dates: start: 1998
  2. PREMARIN [Suspect]
     Active Substance: ESTROGENS, CONJUGATED
     Dosage: UNK
     Route: 067
  3. PREMARIN [Suspect]
     Active Substance: ESTROGENS, CONJUGATED
     Dosage: ONE APPLICATION 1-2 PER WEEK 90 DAYS
     Route: 067

REACTIONS (8)
  - Abdominal pain upper [Unknown]
  - Hypoacusis [Unknown]
  - Vulvovaginal pain [Unknown]
  - Pain in extremity [Unknown]
  - Burning sensation [Unknown]
  - Myocardial infarction [Recovered/Resolved]
  - Off label use [Unknown]
  - Conversion disorder [Unknown]
